FAERS Safety Report 13754103 (Version 1)
Quarter: 2017Q3

REPORT INFORMATION
  Report Type: Spontaneous
  Country: US (occurrence: US)
  Receive Date: 20170714
  Receipt Date: 20170714
  Transmission Date: 20171127
  Serious: No
  Sender: FDA-Public Use
  Company Number: None

PATIENT
  Age: 56 Year
  Sex: Female
  Weight: 68.04 kg

DRUGS (4)
  1. LISINOPRIL. [Concomitant]
     Active Substance: LISINOPRIL
  2. AZOPT [Concomitant]
     Active Substance: BRINZOLAMIDE
  3. BUPROPION. [Suspect]
     Active Substance: BUPROPION
     Indication: MENOPAUSAL DEPRESSION
     Dosage: ?          QUANTITY:I ?L PITT/MAY ?-;?
     Route: 048
     Dates: start: 201406, end: 201409
  4. TRAVATAN EYE DROPS [Concomitant]

REACTIONS (2)
  - Hallucination, tactile [None]
  - Hallucination, visual [None]

NARRATIVE: CASE EVENT DATE: 201406
